FAERS Safety Report 18772136 (Version 1)
Quarter: 2021Q1

REPORT INFORMATION
  Report Type: Spontaneous
  Country: US (occurrence: US)
  Receive Date: 20210121
  Receipt Date: 20210121
  Transmission Date: 20210419
  Serious: Yes (Hospitalization)
  Sender: FDA-Public Use
  Company Number: None

PATIENT
  Sex: Female

DRUGS (8)
  1. ELIQUIS [Concomitant]
     Active Substance: APIXABAN
  2. LUMIGAN [Concomitant]
     Active Substance: BIMATOPROST
  3. ESBRIET [Suspect]
     Active Substance: PIRFENIDONE
     Indication: IDIOPATHIC PULMONARY FIBROSIS
     Dosage: ?          OTHER DOSE:3 TABS ;?
     Route: 048
     Dates: start: 20200131
  4. ASPIRIN. [Concomitant]
     Active Substance: ASPIRIN
  5. METOPROL TAR [Concomitant]
  6. PRENATAL [Concomitant]
     Active Substance: VITAMINS
  7. POT CL MICRO CR [Concomitant]
  8. ATORVASTATIN [Concomitant]
     Active Substance: ATORVASTATIN

REACTIONS (2)
  - Abdominal discomfort [None]
  - Product dose omission issue [None]
